FAERS Safety Report 19973482 (Version 1)
Quarter: 2021Q4

REPORT INFORMATION
  Report Type: Spontaneous
  Country: US (occurrence: US)
  Receive Date: 20211017
  Receipt Date: 20211017
  Transmission Date: 20220303
  Serious: Yes (unspecified)
  Sender: FDA-Public Use
  Company Number: None

PATIENT
  Age: 3 Year
  Sex: Female
  Weight: 15.75 kg

DRUGS (3)
  1. EUCALYPTUS OIL [Suspect]
     Active Substance: EUCALYPTUS OIL
     Indication: Cough
     Dosage: ?          OTHER FREQUENCY:ONCE;
     Route: 061
     Dates: start: 20211013, end: 20211013
  2. EUCALYPTUS OIL [Suspect]
     Active Substance: EUCALYPTUS OIL
     Indication: Nasopharyngitis
  3. EUCALYPTUS OIL [Concomitant]
     Active Substance: EUCALYPTUS OIL

REACTIONS (1)
  - Urticaria [None]

NARRATIVE: CASE EVENT DATE: 20211013
